FAERS Safety Report 13780605 (Version 1)
Quarter: 2017Q3

REPORT INFORMATION
  Report Type: Spontaneous
  Country: US (occurrence: US)
  Receive Date: 20170724
  Receipt Date: 20170724
  Transmission Date: 20171127
  Serious: No
  Sender: FDA-Public Use
  Company Number: US-PFIZER INC-2017315644

PATIENT
  Age: 66 Year
  Sex: Female
  Weight: 64 kg

DRUGS (2)
  1. SERTRALINE HCL [Suspect]
     Active Substance: SERTRALINE HYDROCHLORIDE
     Indication: DEPRESSION
     Dosage: 12.5 MG, 1X/DAY, SPLITS 25 MG IN HALF
     Dates: end: 201506
  2. SERTRALINE HCL [Suspect]
     Active Substance: SERTRALINE HYDROCHLORIDE
     Dosage: 12.5 MG, 1X/DAY, SPLITS 25 MG IN HALF
     Dates: start: 201707

REACTIONS (7)
  - Cognitive disorder [Unknown]
  - Anxiety [Unknown]
  - Depression [Unknown]
  - Condition aggravated [Unknown]
  - Drug ineffective [Unknown]
  - Muscle tightness [Unknown]
  - Mood altered [Unknown]
